FAERS Safety Report 9694873 (Version 1)
Quarter: 2013Q4

REPORT INFORMATION
  Report Type: Spontaneous
  Country: US (occurrence: US)
  Receive Date: 20131119
  Receipt Date: 20131119
  Transmission Date: 20140711
  Serious: No
  Sender: FDA-Public Use
  Company Number: US-PFIZER INC-2013325675

PATIENT
  Age: 60 Year
  Sex: Male

DRUGS (1)
  1. SUTENT [Suspect]
     Dosage: 50 MG CYCLIC (DAILY 4 WEEKS ON, 2 WEEKS OFF)
     Route: 048
     Dates: start: 20110214

REACTIONS (1)
  - Diarrhoea [Unknown]
